FAERS Safety Report 14620350 (Version 1)
Quarter: 2018Q1

REPORT INFORMATION
  Report Type: Spontaneous
  Country: GB (occurrence: GB)
  Receive Date: 20180309
  Receipt Date: 20180309
  Transmission Date: 20180509
  Serious: Yes (Hospitalization)
  Sender: FDA-Public Use
  Company Number: GB-SA-2018SA049499

PATIENT
  Age: 72 Year
  Sex: Female

DRUGS (3)
  1. LANTUS [Suspect]
     Active Substance: INSULIN GLARGINE
     Route: 051
  2. LANTUS [Suspect]
     Active Substance: INSULIN GLARGINE
     Route: 051
  3. NOVORAPID [Suspect]
     Active Substance: INSULIN ASPART
     Route: 065

REACTIONS (7)
  - Mobility decreased [Unknown]
  - Gastroenteritis [Recovering/Resolving]
  - Malaise [Unknown]
  - Influenza [Unknown]
  - Blood glucose increased [Recovered/Resolved]
  - Diarrhoea [Unknown]
  - Intentional product misuse [Unknown]
